FAERS Safety Report 14299379 (Version 1)
Quarter: 2017Q4

REPORT INFORMATION
  Report Type: Report from Study
  Country: None (occurrence: BR)
  Receive Date: 20171219
  Receipt Date: 20171219
  Transmission Date: 20180321
  Serious: Yes (Hospitalization, Other)
  Sender: FDA-Public Use
  Company Number: BR-ABBVIE-10P-020-0666663-00

PATIENT
  Age: 68 Year
  Sex: Female
  Weight: 55 kg

DRUGS (14)
  1. HUMIRA [Suspect]
     Active Substance: ADALIMUMAB
     Route: 058
     Dates: start: 2010
  2. CIPROFIBRATE [Concomitant]
     Active Substance: CIPROFIBRATE
     Indication: BLOOD TRIGLYCERIDES
     Dosage: FORM STRENGTH 100MG; 1 EVERY 24 HR
     Route: 048
  3. NPH INSULIN [Concomitant]
     Active Substance: INSULIN BEEF
     Indication: DIABETES MELLITUS
  4. ENALAPRIL [Concomitant]
     Active Substance: ENALAPRIL
     Indication: HYPERTENSION
     Route: 048
  5. INSULIN [Concomitant]
     Active Substance: INSULIN NOS
     Indication: DIABETES MELLITUS
     Dosage: 2 APPLICATIONS PER DAY
     Route: 058
  6. CLONAZEPAM. [Concomitant]
     Active Substance: CLONAZEPAM
     Indication: SEDATIVE THERAPY
     Route: 048
  7. UNKNOWN MEDICATION [Concomitant]
     Active Substance: UNSPECIFIED INGREDIENT
     Indication: INFLAMMATION
     Route: 048
  8. HUMIRA [Suspect]
     Active Substance: ADALIMUMAB
     Indication: CROHN^S DISEASE
     Route: 058
     Dates: start: 20060101
  9. CLONAZEPAM. [Concomitant]
     Active Substance: CLONAZEPAM
     Indication: ARRHYTHMIA PROPHYLAXIS
  10. GLUCOVANCE [Concomitant]
     Active Substance: GLYBURIDE\METFORMIN HYDROCHLORIDE
     Indication: DIABETES MELLITUS MANAGEMENT
     Route: 048
  11. DONAREN [Concomitant]
     Active Substance: TRAZODONE HYDROCHLORIDE
     Indication: INSOMNIA
  12. PREGABALIN. [Concomitant]
     Active Substance: PREGABALIN
     Indication: SPINAL DISORDER
  13. ZOLPIDEM [Concomitant]
     Active Substance: ZOLPIDEM\ZOLPIDEM TARTRATE
     Indication: INSOMNIA
  14. VENLAFAXINE [Concomitant]
     Active Substance: VENLAFAXINE HYDROCHLORIDE
     Indication: DEPRESSION

REACTIONS (14)
  - Intestinal perforation [Recovered/Resolved]
  - Hypertension [Recovered/Resolved]
  - Hiatus hernia [Recovering/Resolving]
  - Pharyngeal inflammation [Recovered/Resolved]
  - Duodenitis [Not Recovered/Not Resolved]
  - Cardiac arrest [Recovered/Resolved]
  - Haemorrhoids [Not Recovered/Not Resolved]
  - Listless [Recovered/Resolved]
  - Haematochezia [Recovered/Resolved]
  - Blister [Recovered/Resolved]
  - Abdominal pain [Recovered/Resolved]
  - Post procedural swelling [Not Recovered/Not Resolved]
  - Intestinal fistula [Recovered/Resolved]
  - Blood cholesterol increased [Not Recovered/Not Resolved]

NARRATIVE: CASE EVENT DATE: 2008
